FAERS Safety Report 7279598-4 (Version None)
Quarter: 2011Q1

REPORT INFORMATION
  Report Type: 
  Country: None (occurrence: None)
  Receive Date: 20110203
  Receipt Date: 20110203
  Transmission Date: 20110831
  Serious: Yes (Life-Threatening, Hospitalization, Disabling)
  Sender: FDA-Public Use
  Company Number: None

PATIENT
  Age: 77 Year
  Sex: Male
  Weight: 85.2762 kg

DRUGS (1)
  1. CRESTOR [Suspect]
     Indication: HYPERLIPIDAEMIA
     Dosage: 40 MG 1 DAILY O47
     Dates: start: 20091217

REACTIONS (6)
  - VOMITING [None]
  - RENAL FAILURE [None]
  - BRONCHITIS [None]
  - DEHYDRATION [None]
  - TRANSAMINASES INCREASED [None]
  - RHABDOMYOLYSIS [None]
